FAERS Safety Report 14001006 (Version 2)
Quarter: 2017Q4

REPORT INFORMATION
  Report Type: Spontaneous
  Country: US (occurrence: US)
  Receive Date: 20170922
  Receipt Date: 20171121
  Transmission Date: 20180321
  Serious: No
  Sender: FDA-Public Use
  Company Number: US-JNJFOC-20170719581

PATIENT
  Sex: Female

DRUGS (2)
  1. XARELTO [Suspect]
     Active Substance: RIVAROXABAN
     Indication: HIP ARTHROPLASTY
     Dosage: VARYING DOSE OF 15, 20 MG
     Route: 048
     Dates: start: 20150616, end: 20151013
  2. XARELTO [Suspect]
     Active Substance: RIVAROXABAN
     Indication: THROMBOSIS PROPHYLAXIS
     Dosage: VARYING DOSE OF 15, 20 MG
     Route: 048
     Dates: start: 20150616, end: 20151013

REACTIONS (3)
  - Epistaxis [Unknown]
  - Contusion [Unknown]
  - Haematuria [Unknown]
